FAERS Safety Report 4597093-8 (Version None)
Quarter: 2005Q1

REPORT INFORMATION
  Report Type: 
  Country: None (occurrence: None)
  Receive Date: 20050302
  Receipt Date: 20041222
  Transmission Date: 20050727
  Serious: Yes (Life-Threatening, Hospitalization)
  Sender: FDA-Public Use
  Company Number: DE-MERCK-0412DEU00209

PATIENT
  Age: 52 Year
  Sex: Male
  Weight: 80 kg

DRUGS (5)
  1. VIOXX [Suspect]
     Indication: ARTHROPATHY
     Route: 048
     Dates: start: 20001128, end: 20030301
  2. OXYBUTYNIN CHLORIDE [Concomitant]
     Route: 048
     Dates: start: 20000501
  3. AMANTADINE SULFATE [Concomitant]
     Route: 048
     Dates: start: 20010401
  4. LEVOCARNITINE TARTRATE [Concomitant]
     Route: 065
     Dates: start: 20000101
  5. SODIUM LAURYL SULFOACETATE [Concomitant]
     Route: 054
     Dates: start: 20000801

REACTIONS (2)
  - BLOOD CHOLESTEROL INCREASED [None]
  - MYOCARDIAL INFARCTION [None]
